FAERS Safety Report 19799381 (Version 2)
Quarter: 2021Q4

REPORT INFORMATION
  Report Type: Spontaneous
  Country: DE (occurrence: DE)
  Receive Date: 20210907
  Receipt Date: 20211006
  Transmission Date: 20220303
  Serious: Yes (Death, Life-Threatening, Hospitalization, Other)
  Sender: FDA-Public Use
  Company Number: None

PATIENT
  Age: 55 Year
  Sex: Female
  Weight: 70 kg

DRUGS (7)
  1. LINEZOLID [Suspect]
     Active Substance: LINEZOLID
     Indication: Osteomyelitis
     Dosage: 1200 MG DAILY 1-0-1
     Route: 048
     Dates: start: 20210128, end: 20210309
  2. LINEZOLID [Suspect]
     Active Substance: LINEZOLID
     Indication: Enterococcal infection
  3. CLINDAMYCIN [Concomitant]
     Active Substance: CLINDAMYCIN
     Indication: Staphylococcal bacteraemia
     Dosage: 900 MG 1-1-1
     Dates: start: 20210122, end: 20210128
  4. MEROPENEM [Concomitant]
     Active Substance: MEROPENEM
     Indication: Necrotising fasciitis
     Dosage: UNK
     Dates: start: 20210309, end: 20210310
  5. MEROPENEM [Concomitant]
     Active Substance: MEROPENEM
     Indication: Decubitus ulcer
     Dosage: UNK
     Dates: start: 20201210, end: 20201220
  6. CEFTRIAXONE [Concomitant]
     Active Substance: CEFTRIAXONE
     Indication: Pyelonephritis
     Dosage: UNK
     Dates: start: 20210103, end: 20210111
  7. CEFTRIAXONE [Concomitant]
     Active Substance: CEFTRIAXONE
     Indication: Urinary tract infection

REACTIONS (10)
  - Circulatory collapse [Fatal]
  - Renal failure [Fatal]
  - Multiple organ dysfunction syndrome [Fatal]
  - Lactic acidosis [Fatal]
  - Anaemia [Fatal]
  - Thrombocytopenia [Fatal]
  - Oliguria [Fatal]
  - Respiratory failure [Fatal]
  - Metabolic acidosis [Fatal]
  - Sepsis [Fatal]

NARRATIVE: CASE EVENT DATE: 20210101
